FAERS Safety Report 7992852-3 (Version None)
Quarter: 2011Q4

REPORT INFORMATION
  Report Type: 
  Country: None (occurrence: None)
  Receive Date: 20111219
  Receipt Date: 20110927
  Transmission Date: 20120403
  Serious: No
  Sender: FDA-Public Use
  Company Number: US-ASTRAZENECA-2011SE58046

PATIENT
  Age: 63 Year
  Sex: Male
  Weight: 99.8 kg

DRUGS (1)
  1. CRESTOR [Suspect]
     Route: 048
     Dates: start: 20110808

REACTIONS (2)
  - ARTHRALGIA [None]
  - GAIT DISTURBANCE [None]
